FAERS Safety Report 6532571-3 (Version None)
Quarter: 2010Q1

REPORT INFORMATION
  Report Type: 
  Country: None (occurrence: None)
  Receive Date: 20100111
  Receipt Date: 20100106
  Transmission Date: 20100710
  Serious: Yes (Other)
  Sender: FDA-Public Use
  Company Number: US-ROCHE-677371

PATIENT
  Age: 50 Year
  Sex: Male

DRUGS (1)
  1. VALCYTE [Suspect]
     Route: 048

REACTIONS (3)
  - HEPATIC FAILURE [None]
  - JAUNDICE CHOLESTATIC [None]
  - LIVER FUNCTION TEST ABNORMAL [None]
